FAERS Safety Report 24690980 (Version 1)
Quarter: 2024Q4

REPORT INFORMATION
  Report Type: Report from Study
  Country: DE (occurrence: DE)
  Receive Date: 20241203
  Receipt Date: 20241203
  Transmission Date: 20250115
  Serious: Yes (Other)
  Sender: MYLAN
  Company Number: DE-MYLANLABS-2024M1107076

PATIENT
  Age: 55 Year
  Sex: Male

DRUGS (2)
  1. MYCOPHENOLATE MOFETIL [Suspect]
     Active Substance: MYCOPHENOLATE MOFETIL
     Indication: Graft versus host disease
     Dosage: UNK
     Route: 065
     Dates: start: 2021
  2. AXATILIMAB [Suspect]
     Active Substance: AXATILIMAB
     Indication: Graft versus host disease
     Dosage: UNK
     Route: 065
     Dates: start: 2022

REACTIONS (1)
  - Drug ineffective [Unknown]
